FAERS Safety Report 11632736 (Version 6)
Quarter: 2016Q3

REPORT INFORMATION
  Report Type: Report from Study
  Country: JP (occurrence: JP)
  Receive Date: 20151015
  Receipt Date: 20160912
  Transmission Date: 20161109
  Serious: Yes (Death, Hospitalization)
  Sender: FDA-Public Use
  Company Number: JP-INCYTE CORPORATION-2015IN005185

PATIENT
  Age: 66 Year
  Sex: Female

DRUGS (10)
  1. RED BLOOD CELLS [Concomitant]
     Active Substance: HUMAN RED BLOOD CELL
     Dosage: 2 IU, UNK
     Route: 065
  2. JAKAFI [Suspect]
     Active Substance: RUXOLITINIB
     Dosage: 20 MG, BID
     Route: 048
     Dates: end: 201608
  3. JAKAFI [Suspect]
     Active Substance: RUXOLITINIB
     Dosage: 5 MG, BID
     Route: 048
     Dates: start: 20151102
  4. HYDREA [Concomitant]
     Active Substance: HYDROXYUREA
     Indication: MYELOFIBROSIS
     Dosage: 1000 MG, UNK
     Route: 048
     Dates: end: 20140729
  5. RED BLOOD CELLS [Concomitant]
     Active Substance: HUMAN RED BLOOD CELL
     Dosage: 2 IU, UNK
     Route: 065
  6. JAKAFI [Suspect]
     Active Substance: RUXOLITINIB
     Indication: MYELOFIBROSIS
     Dosage: 5 MG, BID
     Route: 048
     Dates: start: 20150306, end: 20150903
  7. RED BLOOD CELLS [Concomitant]
     Active Substance: HUMAN RED BLOOD CELL
     Indication: MYELOFIBROSIS
     Dosage: UNKNOWN
     Route: 065
  8. BONZOL//DANAZOL [Concomitant]
     Indication: MYELOFIBROSIS
     Dosage: 300 MG, UNK
     Route: 048
     Dates: end: 20151101
  9. PREDNISOLONE. [Concomitant]
     Active Substance: PREDNISOLONE
     Indication: MYELOFIBROSIS
     Dosage: UNK
     Route: 048
     Dates: end: 20140817
  10. JAKAFI [Suspect]
     Active Substance: RUXOLITINIB
     Dosage: 7.5 MG, BID
     Route: 048
     Dates: start: 20150904, end: 20151101

REACTIONS (3)
  - Leukaemia [Not Recovered/Not Resolved]
  - Myelofibrosis [Fatal]
  - Sepsis [Recovered/Resolved]

NARRATIVE: CASE EVENT DATE: 20150412
